FAERS Safety Report 17790102 (Version 1)
Quarter: 2020Q2

REPORT INFORMATION
  Report Type: Other
  Country: US (occurrence: US)
  Receive Date: 20200514
  Receipt Date: 20200514
  Transmission Date: 20200714
  Serious: No
  Sender: FDA-Public Use
  Company Number: US-AMAG PHARMACEUTICALS, INC.-AMAG202001525

PATIENT
  Age: 22 Year
  Sex: Female

DRUGS (1)
  1. MAKENA [Suspect]
     Active Substance: HYDROXYPROGESTERONE CAPROATE
     Indication: PREMATURE DELIVERY
     Dosage: 250MG/ML, WEEKLY
     Route: 058
     Dates: start: 20200422

REACTIONS (9)
  - Limb discomfort [Unknown]
  - Inappropriate schedule of product administration [Unknown]
  - Injection site rash [Unknown]
  - Body temperature fluctuation [Unknown]
  - Injection site discolouration [Unknown]
  - Injection site erythema [Unknown]
  - Tenderness [Unknown]
  - Pyrexia [Unknown]
  - Pain [Unknown]

NARRATIVE: CASE EVENT DATE: 20200422
